FAERS Safety Report 14277130 (Version 2)
Quarter: 2018Q2

REPORT INFORMATION
  Report Type: Report from Study
  Country: US (occurrence: US)
  Receive Date: 20171212
  Receipt Date: 20180416
  Transmission Date: 20180711
  Serious: Yes (Other)
  Sender: FDA-Public Use
  Company Number: US-BAYER-2017-233203

PATIENT
  Age: 66 Year
  Sex: Female

DRUGS (1)
  1. NEXAVAR [Suspect]
     Active Substance: SORAFENIB
     Indication: HEPATOCELLULAR CARCINOMA
     Dosage: 400 MG, BID
     Dates: start: 20170921, end: 20171122

REACTIONS (4)
  - Chest pain [None]
  - Pulmonary embolism [None]
  - Vena cava thrombosis [None]
  - Palpitations [None]

NARRATIVE: CASE EVENT DATE: 20171122
